FAERS Safety Report 5517463-0 (Version None)
Quarter: 2007Q4

REPORT INFORMATION
  Report Type: 
  Country: None (occurrence: None)
  Receive Date: 20071114
  Receipt Date: 20071102
  Transmission Date: 20080405
  Serious: Yes (Other)
  Sender: FDA-Public Use
  Company Number: GB-PFIZER INC-2007072968

PATIENT
  Age: 70 Year
  Sex: Female

DRUGS (1)
  1. CHAMPIX [Suspect]
     Route: 048
     Dates: start: 20070316, end: 20070413

REACTIONS (5)
  - CONSTIPATION [None]
  - FLATULENCE [None]
  - MOUTH ULCERATION [None]
  - MUSCLE SPASMS [None]
  - SLEEP DISORDER [None]
